FAERS Safety Report 14124182 (Version 1)
Quarter: 2017Q4

REPORT INFORMATION
  Report Type: Spontaneous
  Country: PT (occurrence: PT)
  Receive Date: 20171025
  Receipt Date: 20171025
  Transmission Date: 20180321
  Serious: Yes (Other)
  Sender: FDA-Public Use
  Company Number: PT-ROCHE-2013862

PATIENT
  Age: 52 Year
  Sex: Female

DRUGS (2)
  1. TRASTUZUMAB. [Suspect]
     Active Substance: TRASTUZUMAB
     Indication: HER-2 POSITIVE BREAST CANCER
     Route: 058
     Dates: start: 20170131
  2. TAMOXIFEN [Concomitant]
     Active Substance: TAMOXIFEN
     Indication: HER-2 POSITIVE BREAST CANCER

REACTIONS (1)
  - Onycholysis [Not Recovered/Not Resolved]
